FAERS Safety Report 9563158 (Version 1)
Quarter: 2013Q3

REPORT INFORMATION
  Report Type: Spontaneous
  Country: US (occurrence: US)
  Receive Date: 20130927
  Receipt Date: 20130927
  Transmission Date: 20140515
  Serious: No
  Sender: FDA-Public Use
  Company Number: US-BRISTOL-MYERS SQUIBB COMPANY-18700054

PATIENT
  Age: 62 Year
  Sex: Female

DRUGS (11)
  1. ONGLYZA TABS 5 MG [Suspect]
  2. ACTOS [Concomitant]
  3. GLIMEPIRIDE [Concomitant]
  4. LOSARTAN [Concomitant]
     Dosage: 100/12.5MG
  5. NEXIUM [Concomitant]
  6. SYMBICORT [Concomitant]
  7. IRON [Concomitant]
  8. ASPIRIN [Concomitant]
  9. FISH OIL [Concomitant]
  10. VITAMIN D [Concomitant]
  11. LIPITOR [Concomitant]

REACTIONS (1)
  - Vitreous floaters [Recovering/Resolving]
